FAERS Safety Report 17327174 (Version 2)
Quarter: 2020Q1

REPORT INFORMATION
  Report Type: Report from Study
  Country: NL (occurrence: NL)
  Receive Date: 20200127
  Receipt Date: 20200312
  Transmission Date: 20200409
  Serious: Yes (Other)
  Sender: FDA-Public Use
  Company Number: NL-MYLANLABS-2020M1008159

PATIENT
  Age: 73 Year
  Sex: Male
  Weight: 82 kg

DRUGS (10)
  1. OXYCODONE [Concomitant]
     Active Substance: OXYCODONE
     Dosage: 20 MILLIGRAM, QD(5 MG, 4X/DAY)
  2. FUROSEMIDE. [Suspect]
     Active Substance: FUROSEMIDE
     Indication: OEDEMA
     Dosage: UNK
     Route: 065
  3. LABETALOL [Concomitant]
     Active Substance: LABETALOL\LABETALOL HYDROCHLORIDE
     Dosage: UNK
  4. CRIZOTINIB [Suspect]
     Active Substance: CRIZOTINIB
     Indication: PRODUCT USED FOR UNKNOWN INDICATION
     Dosage: 500 MILLIGRAM, QD (250 MG, 2X/DAY)
     Dates: start: 20190728
  5. MACROGOL [Concomitant]
     Active Substance: POLYETHYLENE GLYCOLS
     Dosage: UNK
  6. CRIZOTINIB [Suspect]
     Active Substance: CRIZOTINIB
     Dosage: 400 MILLIGRAM, QD (200 MG, 2X/DAY)
  7. PCM [Concomitant]
     Active Substance: ACETAMINOPHEN
     Dosage: UNK
  8. CRIZOTINIB [Suspect]
     Active Substance: CRIZOTINIB
     Dosage: 500 MILLIGRAM, QD(250 MG, 2X/DAY)
     Dates: start: 20190731
  9. OMEPRAZOLE. [Concomitant]
     Active Substance: OMEPRAZOLE
     Dosage: UNK
  10. ACETYLSALICYLIC ACID [Concomitant]
     Active Substance: ASPIRIN
     Dosage: UNK

REACTIONS (2)
  - Oedema [Recovering/Resolving]
  - Renal impairment [Unknown]
